FAERS Safety Report 10654781 (Version 2)
Quarter: 2016Q4

REPORT INFORMATION
  Report Type: Spontaneous
  Country: US (occurrence: US)
  Receive Date: 20141216
  Receipt Date: 20161121
  Transmission Date: 20170206
  Serious: No
  Sender: FDA-Public Use
  Company Number: US-PFIZER INC-2014342436

PATIENT
  Age: 71 Year
  Sex: Female

DRUGS (13)
  1. TRAZODONE HYDROCHLORIDE. [Concomitant]
     Active Substance: TRAZODONE HYDROCHLORIDE
     Indication: DYSKINESIA
     Dosage: 200 MG, 1X/DAY (TAKE 2 TABLET, EVERY NIGHT AT BEDTIME)
     Route: 048
     Dates: start: 20081007
  2. LYRICA [Suspect]
     Active Substance: PREGABALIN
     Indication: MUSCLE SPASMS
  3. LISINOPRIL. [Concomitant]
     Active Substance: LISINOPRIL
     Indication: HYPERTENSION
     Dosage: 10 MG, DAILY
     Route: 048
     Dates: start: 20131024
  4. CENTRUM SILVER [Concomitant]
     Active Substance: MINERALS\VITAMINS
     Indication: SPINAL DECOMPRESSION
     Dosage: UNK
     Route: 048
     Dates: start: 20110511
  5. GARCINIA CAMBOGIA-CHROMIUM [Concomitant]
     Dosage: UNK (GARCINIA CAMBOGIA: 500 MG/ CHROMIUM: 200 MCG)
     Route: 048
     Dates: start: 20140325
  6. TYLENOL PM EXTRA STRENGTH [Concomitant]
     Active Substance: ACETAMINOPHEN\DIPHENHYDRAMINE HYDROCHLORIDE
     Indication: SPINAL DECOMPRESSION
     Dosage: UNK (500-25 MG ORAL TABLET)
     Route: 048
     Dates: start: 20110511
  7. FOLIC ACID. [Concomitant]
     Active Substance: FOLIC ACID
     Indication: VITAMIN B12 DEFICIENCY
     Dosage: 1 MG, DAILY
     Route: 048
     Dates: start: 20160526
  8. CYMBALTA [Concomitant]
     Active Substance: DULOXETINE HYDROCHLORIDE
     Indication: DEPRESSION
     Dosage: 50 MG, DAILY
     Route: 048
     Dates: start: 20110511
  9. TRAMADOL HCL [Concomitant]
     Active Substance: TRAMADOL HYDROCHLORIDE
     Indication: DYSKINESIA
     Dosage: 50 MG, AS NEEDED (THREE TIMES A DAY)
     Route: 048
     Dates: start: 20081007
  10. VITAMIN D [Concomitant]
     Active Substance: CHOLECALCIFEROL
     Indication: OSTEOPENIA
     Dosage: 1000 IU, DAILY
     Dates: start: 20150218
  11. CYANOCOBALAMIN. [Concomitant]
     Active Substance: CYANOCOBALAMIN
     Indication: VITAMIN B12 DEFICIENCY
     Dosage: 1 ML, MONTHLY
     Route: 030
     Dates: start: 20140808
  12. LYRICA [Suspect]
     Active Substance: PREGABALIN
     Indication: MUSCULAR WEAKNESS
     Dosage: 150 MG, 3X/DAY
     Route: 048
     Dates: start: 20160212
  13. ASPIRIN. [Concomitant]
     Active Substance: ASPIRIN
     Indication: ROUTINE HEALTH MAINTENANCE
     Dosage: 81 MG, DAILY
     Dates: start: 20130312

REACTIONS (2)
  - Product use issue [Unknown]
  - Tremor [Unknown]
